FAERS Safety Report 5215717-9 (Version None)
Quarter: 2007Q1

REPORT INFORMATION
  Report Type: 
  Country: None (occurrence: None)
  Receive Date: 20070117
  Receipt Date: 20070108
  Transmission Date: 20070707
  Serious: Yes (Disabling)
  Sender: FDA-Public Use
  Company Number: 2007-152663-NL

PATIENT
  Age: 61 Year
  Sex: Male

DRUGS (1)
  1. MIRTAZAPINE [Suspect]
     Indication: SLEEP DISORDER
     Dosage: 15 MG ORAL
     Route: 048
     Dates: start: 20060501, end: 20061101

REACTIONS (1)
  - TOOTH EROSION [None]
